FAERS Safety Report 7073208-7 (Version None)
Quarter: 2010Q4

REPORT INFORMATION
  Report Type: 
  Country: None (occurrence: None)
  Receive Date: 20101029
  Receipt Date: 20100510
  Transmission Date: 20110411
  Serious: No
  Sender: FDA-Public Use
  Company Number: A0858945A

PATIENT

DRUGS (1)
  1. ADVAIR DISKUS 100/50 [Suspect]

REACTIONS (1)
  - CANDIDIASIS [None]
